FAERS Safety Report 18987325 (Version 1)
Quarter: 2021Q1

REPORT INFORMATION
  Report Type: Spontaneous
  Country: IL (occurrence: IL)
  Receive Date: 20210309
  Receipt Date: 20210309
  Transmission Date: 20210420
  Serious: Yes (Other)
  Sender: FDA-Public Use
  Company Number: IL-ORGANON-O2103ISR000954

PATIENT
  Age: 66 Year
  Sex: Male

DRUGS (1)
  1. SINGULAIR [Suspect]
     Active Substance: MONTELUKAST SODIUM
     Dosage: 10 MILLIGRAM
     Dates: start: 20000101

REACTIONS (3)
  - Headache [Unknown]
  - Dizziness [Unknown]
  - Drug ineffective [Unknown]
